FAERS Safety Report 5599501-2 (Version None)
Quarter: 2007Q4

REPORT INFORMATION
  Report Type: 
  Country: None (occurrence: None)
  Receive Date: 20071231
  Receipt Date: 20070117
  Transmission Date: 20080405
  Serious: Yes (Death, Hospitalization)
  Sender: FDA-Public Use
  Company Number: 150756USA

PATIENT
  Age: 65 Year
  Sex: Male
  Weight: 100.6985 kg

DRUGS (15)
  1. AMIODARONE HYDROCHLORIDE [Suspect]
     Indication: CARDIOMEGALY
     Dosage: 200 MG (200 MG, 1 IN 1 D)
     Dates: start: 20020101, end: 20061101
  2. AMIODARONE HYDROCHLORIDE [Suspect]
     Indication: VENTRICULAR ARRHYTHMIA
     Dosage: 200 MG (200 MG, 1 IN 1 D)
     Dates: start: 20020101, end: 20061101
  3. SALBUTAMOL [Concomitant]
  4. QUINAPRIL HCL [Concomitant]
  5. ACETYLSALICYLIC ACID SRT [Concomitant]
  6. WARFARIN SODIUM [Concomitant]
  7. DIGOXIN [Concomitant]
  8. FLUTICASONE PROPIONATE [Concomitant]
  9. FUROSEMIDE [Concomitant]
  10. LEVOTHYROXINE SODIUM [Concomitant]
  11. LOVASTATIN [Concomitant]
  12. NICOTINIC ACID [Concomitant]
  13. SPIRONOLACTONE [Concomitant]
  14. TERAZOSIN HCL [Concomitant]
  15. METOPROLOL SUCCINATE [Concomitant]

REACTIONS (3)
  - LUNG INFILTRATION [None]
  - PULMONARY TOXICITY [None]
  - RESPIRATORY FAILURE [None]
